FAERS Safety Report 21131343 (Version 1)
Quarter: 2022Q3

REPORT INFORMATION
  Report Type: Spontaneous
  Country: JP (occurrence: JP)
  Receive Date: 20220726
  Receipt Date: 20220726
  Transmission Date: 20221027
  Serious: Yes (Other)
  Sender: FDA-Public Use
  Company Number: JP-ORGANON-O2207JPN001968

PATIENT
  Age: 67 Year
  Sex: Male

DRUGS (1)
  1. BONALON [Suspect]
     Active Substance: ALENDRONATE SODIUM
     Dosage: 35 MILLIGRAM PER WEEK
     Route: 048
     Dates: start: 202012, end: 202101

REACTIONS (1)
  - Drug-induced liver injury [Unknown]
